FAERS Safety Report 5417547-1 (Version None)
Quarter: 2007Q3

REPORT INFORMATION
  Report Type: 
  Country: None (occurrence: None)
  Receive Date: 20070718
  Receipt Date: 20060710
  Transmission Date: 20080115
  Serious: Yes (Death, Hospitalization, Other)
  Sender: FDA-Public Use
  Company Number: 2005122892

PATIENT
  Age: 59 Year
  Sex: Female
  Weight: 65.7716 kg

DRUGS (7)
  1. CELEBREX [Suspect]
     Indication: BACK PAIN
     Dosage: 200 MG (200 MG, 1 IN 1 D); ORAL
     Route: 048
     Dates: start: 20020613
  2. CELEBREX [Suspect]
     Indication: MYALGIA
     Dosage: 200 MG (200 MG, 1 IN 1 D); ORAL
     Route: 048
     Dates: start: 20020613
  3. ACETAMINOPHEN [Concomitant]
  4. MORPHINE [Concomitant]
  5. DEMEROL [Concomitant]
  6. CODEINE SUL TAB [Concomitant]
  7. ACETYLSALICYLIC ACID SRT [Concomitant]

REACTIONS (1)
  - MYOCARDIAL INFARCTION [None]
